FAERS Safety Report 25990414 (Version 1)
Quarter: 2025Q4

REPORT INFORMATION
  Report Type: Spontaneous
  Country: CH (occurrence: CH)
  Receive Date: 20251103
  Receipt Date: 20251103
  Transmission Date: 20260117
  Serious: Yes (Hospitalization, Other)
  Sender: PFIZER
  Company Number: None

PATIENT
  Age: 65 Year
  Sex: Male

DRUGS (14)
  1. LORAZEPAM [Suspect]
     Active Substance: LORAZEPAM
     Dosage: AS NECESSARY
     Dates: start: 202508, end: 20250917
  2. PANTOPRAZOLE [Suspect]
     Active Substance: PANTOPRAZOLE
     Dosage: 40 MG, 1X/DAY
     Dates: start: 202507, end: 20250914
  3. HERBALS\HOMEOPATHICS [Suspect]
     Active Substance: HERBALS\HOMEOPATHICS
     Dosage: UNK
     Dates: start: 202508, end: 202509
  4. NYSTATIN [Suspect]
     Active Substance: NYSTATIN
     Dosage: UNK
     Dates: start: 202508, end: 202509
  5. AMLODIPINE [Suspect]
     Active Substance: AMLODIPINE BESYLATE
     Dosage: UNK
     Dates: start: 202507, end: 202507
  6. AMLODIPINE [Suspect]
     Active Substance: AMLODIPINE BESYLATE
     Dosage: AS NECESSARY
     Dates: start: 202507, end: 20250917
  7. BILASTINE [Suspect]
     Active Substance: BILASTINE
     Dosage: UNK
     Dates: end: 20250917
  8. BACTRIM [Suspect]
     Active Substance: SULFAMETHOXAZOLE\TRIMETHOPRIM
     Dosage: THREE TIMES WEEKLY
     Dates: start: 202507, end: 20250908
  9. DEXAMETHASONE [Suspect]
     Active Substance: DEXAMETHASONE
     Dosage: 6 MG, 1X/DAY
     Dates: start: 202508, end: 20250917
  10. TEMOZOLOMIDE [Suspect]
     Active Substance: TEMOZOLOMIDE
     Dosage: 140 MG, 1X/DAY
     Dates: start: 20250721, end: 20250902
  11. OXAZEPAM [Suspect]
     Active Substance: OXAZEPAM
     Dosage: UNK
     Dates: end: 20250917
  12. FOLIC ACID [Suspect]
     Active Substance: FOLIC ACID
     Dosage: UNK
     Dates: start: 202507
  13. OLMESARTAN MEDOXOMIL [Suspect]
     Active Substance: OLMESARTAN MEDOXOMIL
     Dosage: UNK
     Dates: end: 20250915
  14. UNSPECIFIED INGREDIENT [Concomitant]
     Active Substance: UNSPECIFIED INGREDIENT
     Dosage: UNK
     Dates: start: 202504, end: 202507

REACTIONS (1)
  - Toxic epidermal necrolysis [Recovering/Resolving]

NARRATIVE: CASE EVENT DATE: 20250905
